FAERS Safety Report 8934636 (Version 2)
Quarter: 2015Q2

REPORT INFORMATION
  Report Type: Spontaneous
  Country: US (occurrence: US)
  Receive Date: 20121129
  Receipt Date: 20150528
  Transmission Date: 20150821
  Serious: Yes (Congenital Anomaly, Other)
  Sender: FDA-Public Use
  Company Number: US-ELI_LILLY_AND_COMPANY-US201211005896

PATIENT
  Age: 0 Day

DRUGS (2)
  1. PRENATABS RX [Concomitant]
     Active Substance: VITAMINS
     Route: 064
  2. PROZAC [Suspect]
     Active Substance: FLUOXETINE HYDROCHLORIDE
     Indication: PRODUCT USED FOR UNKNOWN INDICATION
     Dosage: 1 DF, UNKNOWN
     Route: 064

REACTIONS (4)
  - Syndactyly [Unknown]
  - Asthma [Unknown]
  - Foetal exposure during pregnancy [Recovered/Resolved]
  - Shoulder dystocia [Recovered/Resolved]

NARRATIVE: CASE EVENT DATE: 20040217
